FAERS Safety Report 23903064 (Version 1)
Quarter: 2024Q2

REPORT INFORMATION
  Report Type: Spontaneous
  Country: US (occurrence: US)
  Receive Date: 20240527
  Receipt Date: 20240527
  Transmission Date: 20240716
  Serious: Yes (Other)
  Sender: FDA-Public Use
  Company Number: US-GLAXOSMITHKLINE-US2024AMR064082

PATIENT

DRUGS (14)
  1. ZEJULA [Suspect]
     Active Substance: NIRAPARIB
     Indication: Ovarian cancer
     Dosage: 200 MG, QD
     Dates: start: 202201
  2. STIOLTO RESPIMAT [Concomitant]
     Active Substance: OLODATEROL HYDROCHLORIDE\TIOTROPIUM BROMIDE MONOHYDRATE
     Indication: Product used for unknown indication
     Dosage: UNK
  3. ATROVENT HFA [Concomitant]
     Active Substance: IPRATROPIUM BROMIDE
     Indication: Product used for unknown indication
     Dosage: 17 UG
  4. PROVIGIL [Concomitant]
     Active Substance: MODAFINIL
     Indication: Product used for unknown indication
     Dosage: 100 MG
  5. TYLENOL [Concomitant]
     Active Substance: ACETAMINOPHEN
     Indication: Product used for unknown indication
     Dosage: 325 MG
  6. MOTRIN IB [Concomitant]
     Active Substance: IBUPROFEN
     Indication: Product used for unknown indication
     Dosage: 200 MG
  7. ATIVAN [Concomitant]
     Active Substance: LORAZEPAM
     Indication: Product used for unknown indication
     Dosage: 0.5 MG
  8. TRIHEXYPHENIDYL HYDROCHLORIDE [Concomitant]
     Active Substance: TRIHEXYPHENIDYL HYDROCHLORIDE
     Indication: Product used for unknown indication
     Dosage: 2 MG
  9. LATUDA [Concomitant]
     Active Substance: LURASIDONE HYDROCHLORIDE
     Indication: Product used for unknown indication
     Dosage: 120 MG
  10. LAMICTAL [Concomitant]
     Active Substance: LAMOTRIGINE
     Indication: Product used for unknown indication
     Dosage: 100 MG
  11. GABAPENTIN [Concomitant]
     Active Substance: GABAPENTIN
     Indication: Product used for unknown indication
     Dosage: 100 MG
  12. PEPCID [Concomitant]
     Active Substance: FAMOTIDINE
     Indication: Product used for unknown indication
     Dosage: 20 MG
  13. LEXAPRO [Concomitant]
     Active Substance: ESCITALOPRAM OXALATE
     Indication: Product used for unknown indication
     Dosage: 10 MG
  14. PROTONIX [Concomitant]
     Active Substance: PANTOPRAZOLE SODIUM
     Indication: Product used for unknown indication
     Dosage: 20 MG

REACTIONS (2)
  - Recurrent cancer [Unknown]
  - Hepatic enzyme increased [Unknown]
